FAERS Safety Report 14576839 (Version 3)
Quarter: 2018Q2

REPORT INFORMATION
  Report Type: Spontaneous
  Country: CA (occurrence: CA)
  Receive Date: 20180227
  Receipt Date: 20180417
  Transmission Date: 20180711
  Serious: Yes (Other)
  Sender: FDA-Public Use
  Company Number: CA-ROCHE-2077522

PATIENT
  Age: 59 Year
  Sex: Male

DRUGS (6)
  1. XOLAIR [Suspect]
     Active Substance: OMALIZUMAB
     Route: 058
     Dates: start: 201704
  2. ATROVENT [Concomitant]
     Active Substance: IPRATROPIUM BROMIDE
     Indication: PRODUCT USED FOR UNKNOWN INDICATION
     Route: 065
  3. PREDNISONE. [Concomitant]
     Active Substance: PREDNISONE
  4. SYMBICORT [Concomitant]
     Active Substance: BUDESONIDE\FORMOTEROL FUMARATE DIHYDRATE
     Indication: PRODUCT USED FOR UNKNOWN INDICATION
     Route: 065
  5. XOLAIR [Suspect]
     Active Substance: OMALIZUMAB
     Indication: ASTHMA
     Route: 058
     Dates: start: 20160223
  6. VENTOLIN [Concomitant]
     Active Substance: ALBUTEROL SULFATE
     Indication: PRODUCT USED FOR UNKNOWN INDICATION
     Route: 065

REACTIONS (31)
  - Condition aggravated [Unknown]
  - Eye pruritus [Unknown]
  - Oxygen saturation decreased [Unknown]
  - Lacrimation increased [Unknown]
  - Chest discomfort [Unknown]
  - Cough [Unknown]
  - Exercise tolerance decreased [Unknown]
  - Dyspnoea exertional [Unknown]
  - Productive cough [Unknown]
  - Vital capacity decreased [Recovering/Resolving]
  - Wheezing [Unknown]
  - Throat irritation [Unknown]
  - Eosinophil count increased [Unknown]
  - Dust allergy [Unknown]
  - Sensitivity to weather change [Unknown]
  - Quality of life decreased [Unknown]
  - Asthma [Unknown]
  - Bronchial hyperreactivity [Unknown]
  - Device issue [Unknown]
  - Frustration tolerance decreased [Unknown]
  - Arthralgia [Unknown]
  - Dyspnoea [Unknown]
  - Obstructive airways disorder [Unknown]
  - Drug ineffective [Unknown]
  - Insomnia [Unknown]
  - Rhinorrhoea [Unknown]
  - Sinusitis [Unknown]
  - Upper-airway cough syndrome [Unknown]
  - Diabetes mellitus [Recovering/Resolving]
  - Forced expiratory volume decreased [Recovering/Resolving]
  - Discomfort [Unknown]

NARRATIVE: CASE EVENT DATE: 20180129
